FAERS Safety Report 20160279 (Version 1)
Quarter: 2021Q4

REPORT INFORMATION
  Report Type: Spontaneous
  Country: DK (occurrence: DK)
  Receive Date: 20211208
  Receipt Date: 20211208
  Transmission Date: 20220303
  Serious: Yes (Hospitalization, Other)
  Sender: FDA-Public Use
  Company Number: DK-ABBVIE-21K-044-4182753-00

PATIENT
  Age: 26 Year
  Sex: Male
  Weight: 90 kg

DRUGS (11)
  1. VALPROATE [Suspect]
     Active Substance: VALPROIC ACID
     Indication: T-cell prolymphocytic leukaemia
     Route: 065
  2. VENETOCLAX [Suspect]
     Active Substance: VENETOCLAX
     Indication: T-cell prolymphocytic leukaemia
     Dosage: DAILY RAMP UP TO 400 MG. CONTINUOUS
     Route: 065
  3. VENETOCLAX [Suspect]
     Active Substance: VENETOCLAX
     Route: 065
  4. MABCAMPATH [Suspect]
     Active Substance: ALEMTUZUMAB
     Indication: T-cell prolymphocytic leukaemia
     Dosage: ON DAY 1
     Route: 041
  5. MABCAMPATH [Suspect]
     Active Substance: ALEMTUZUMAB
     Dosage: ON DAY 2
     Route: 041
  6. MABCAMPATH [Suspect]
     Active Substance: ALEMTUZUMAB
     Dosage: ON DAY 3
     Route: 041
  7. MABCAMPATH [Suspect]
     Active Substance: ALEMTUZUMAB
     Route: 041
  8. CLADRIBINE [Suspect]
     Active Substance: CLADRIBINE
     Indication: T-cell prolymphocytic leukaemia
     Dosage: 5 DAYS EVERY 4 WEEKS
     Route: 058
  9. VORINOSTAT [Suspect]
     Active Substance: VORINOSTAT
     Indication: T-cell prolymphocytic leukaemia
     Route: 065
  10. CYTARABINE [Concomitant]
     Active Substance: CYTARABINE
     Indication: Product used for unknown indication
  11. FLUDARABINE [Concomitant]
     Active Substance: FLUDARABINE PHOSPHATE
     Indication: Product used for unknown indication

REACTIONS (3)
  - Neutropenia [Unknown]
  - Pyrexia [Unknown]
  - Off label use [Unknown]
